FAERS Safety Report 17568376 (Version 2)
Quarter: 2020Q2

REPORT INFORMATION
  Report Type: Report from Study
  Country: NL (occurrence: NL)
  Receive Date: 20200320
  Receipt Date: 20200515
  Transmission Date: 20200713
  Serious: Yes (Death, Hospitalization)
  Sender: FDA-Public Use
  Company Number: NL-PFIZER INC-2020096063

PATIENT
  Age: 59 Year
  Sex: Male
  Weight: 68.5 kg

DRUGS (2)
  1. AVELUMAB [Suspect]
     Active Substance: AVELUMAB
     Indication: BLADDER CANCER
     Dosage: 690 MG, CYCLIC (EVERY 28 DAYS)
     Route: 042
     Dates: start: 20170815, end: 20200210
  2. FRAGMIN [Suspect]
     Active Substance: DALTEPARIN SODIUM
     Indication: ANTICOAGULANT THERAPY
     Dosage: 12500 IU, 1X/DAY
     Route: 058
     Dates: start: 20170401, end: 20200229

REACTIONS (2)
  - Retroperitoneal haemorrhage [Fatal]
  - Shock haemorrhagic [Fatal]

NARRATIVE: CASE EVENT DATE: 20200228
